FAERS Safety Report 8567541 (Version 3)
Quarter: 2012Q4

REPORT INFORMATION
  Report Type: 
  Country: UY (occurrence: UY)
  Receive Date: 20120517
  Receipt Date: 20120925
  Transmission Date: 20130627
  Serious: Yes (Hospitalization)
  Sender: FDA-Public Use
  Company Number: UY-ABBOTT-12P-168-0934788-00

PATIENT
  Age: 47 Year
  Sex: Female
  Weight: 40 kg

DRUGS (3)
  1. HUMIRA 40 MG/ 0.8 ML PRE-FILLED SYRINGE [Suspect]
     Indication: CROHN^S DISEASE
     Dates: start: 20120118, end: 20120510
  2. AZATHIOPRINE [Concomitant]
     Indication: CROHN^S DISEASE
     Dates: end: 20120510
  3. AZATHIOPRINE [Concomitant]
     Indication: ANAL FISTULA

REACTIONS (4)
  - Pyrexia [Unknown]
  - Abdominal distension [Unknown]
  - Polyserositis [Not Recovered/Not Resolved]
  - Peritoneal tuberculosis [Recovering/Resolving]
